FAERS Safety Report 12697293 (Version 1)
Quarter: 2016Q3

REPORT INFORMATION
  Report Type: Spontaneous
  Country: US (occurrence: None)
  Receive Date: 20160829
  Receipt Date: 20160829
  Transmission Date: 20161109
  Serious: Yes (Other)
  Sender: FDA-Public Use
  Company Number: None

PATIENT
  Age: 34 Year
  Sex: Female
  Weight: 103.87 kg

DRUGS (5)
  1. CIPROFLOXACN 500MG TAB NORT, 500 MG [Suspect]
     Active Substance: CIPROFLOXACIN
     Indication: RESPIRATORY TRACT INFECTION
     Route: 048
     Dates: start: 20160824, end: 20160827
  2. VENTOLIN HFA [Concomitant]
     Active Substance: ALBUTEROL SULFATE
  3. NP THYROID [Concomitant]
     Active Substance: LEVOTHYROXINE\LIOTHYRONINE
  4. CABERGOLINE. [Concomitant]
     Active Substance: CABERGOLINE
  5. PROMETH/CODEINE SYRUP [Concomitant]

REACTIONS (7)
  - Arthralgia [None]
  - Musculoskeletal pain [None]
  - Myalgia [None]
  - Lethargy [None]
  - Pain in extremity [None]
  - Musculoskeletal stiffness [None]
  - Pain [None]

NARRATIVE: CASE EVENT DATE: 20160826
